FAERS Safety Report 4830497-4 (Version None)
Quarter: 2005Q4

REPORT INFORMATION
  Report Type: 
  Country: None (occurrence: None)
  Receive Date: 20051117
  Receipt Date: 20051110
  Transmission Date: 20060501
  Serious: Yes (Other)
  Sender: FDA-Public Use
  Company Number: PHBS2005JP16653

PATIENT

DRUGS (1)
  1. CYCLOSPORINE [Suspect]
     Route: 065

REACTIONS (1)
  - HAEMOLYTIC ANAEMIA [None]
